FAERS Safety Report 12221051 (Version 4)
Quarter: 2016Q2

REPORT INFORMATION
  Report Type: Spontaneous
  Country: GB (occurrence: GB)
  Receive Date: 20160330
  Receipt Date: 20160429
  Transmission Date: 20160815
  Serious: Yes (Hospitalization)
  Sender: FDA-Public Use
  Company Number: GB-AMGEN-GBRSP2016021974

PATIENT
  Age: 65 Year
  Sex: Female

DRUGS (19)
  1. ENBREL [Suspect]
     Active Substance: ETANERCEPT
     Dosage: 50 MG, WEEKLY
     Route: 058
  2. THYROXINE [Concomitant]
     Active Substance: LEVOTHYROXINE
     Dosage: 100 MG, UNK
  3. ENBREL [Suspect]
     Active Substance: ETANERCEPT
     Dosage: 50 MG, WEEKLY
     Route: 058
  4. ENBREL [Suspect]
     Active Substance: ETANERCEPT
     Dosage: 50 MG, WEEKLY
     Route: 058
  5. VITAMIN D                          /00107901/ [Concomitant]
     Active Substance: ERGOCALCIFEROL
     Indication: HYPOVITAMINOSIS
     Dosage: 800 IU, UNK
  6. VITAMIN D                          /00107901/ [Concomitant]
     Active Substance: ERGOCALCIFEROL
     Indication: VITAMIN D DEFICIENCY
  7. FENTANYL. [Concomitant]
     Active Substance: FENTANYL
     Indication: PAIN
     Dosage: 25 MG, UNK
  8. ENBREL [Suspect]
     Active Substance: ETANERCEPT
     Dosage: 50 MG, WEEKLY
     Route: 058
  9. ENBREL [Suspect]
     Active Substance: ETANERCEPT
     Indication: PRODUCT USED FOR UNKNOWN INDICATION
     Dosage: 50 MG, WEEKLY
     Route: 058
     Dates: start: 20160125
  10. ENBREL [Suspect]
     Active Substance: ETANERCEPT
     Dosage: 50 MG, WEEKLY
     Route: 058
  11. ENBREL [Suspect]
     Active Substance: ETANERCEPT
     Dosage: 50 MG, WEEKLY
     Route: 058
  12. ISONIAZID. [Concomitant]
     Active Substance: ISONIAZID
     Dosage: UNK
  13. FENTANYL. [Concomitant]
     Active Substance: FENTANYL
     Dosage: 25 MG, UNK
  14. ISONIAZID. [Concomitant]
     Active Substance: ISONIAZID
     Indication: LATENT TUBERCULOSIS
     Dosage: UNK
  15. ISONIAZID. [Concomitant]
     Active Substance: ISONIAZID
     Dosage: UNK
  16. FENTANYL. [Concomitant]
     Active Substance: FENTANYL
     Dosage: 25 MG, UNK
  17. ENBREL [Suspect]
     Active Substance: ETANERCEPT
     Dosage: 50 MG, WEEKLY LEFT THIGH
     Route: 058
  18. ISONIAZID. [Concomitant]
     Active Substance: ISONIAZID
     Dosage: UNK
  19. FENTANYL. [Concomitant]
     Active Substance: FENTANYL
     Dosage: 25 MG, UNK

REACTIONS (14)
  - Depressed mood [Unknown]
  - Condition aggravated [Not Recovered/Not Resolved]
  - Headache [Not Recovered/Not Resolved]
  - Injection site bruising [Recovering/Resolving]
  - Injection site erythema [Unknown]
  - Joint stiffness [Not Recovered/Not Resolved]
  - Arthralgia [Not Recovered/Not Resolved]
  - Injection site pruritus [Recovered/Resolved]
  - Injection site reaction [Unknown]
  - Pruritus [Not Recovered/Not Resolved]
  - Nausea [Not Recovered/Not Resolved]
  - Pruritus generalised [Not Recovered/Not Resolved]
  - Cough [Unknown]
  - Somnolence [Recovered/Resolved]

NARRATIVE: CASE EVENT DATE: 2016
